FAERS Safety Report 15231871 (Version 1)
Quarter: 2018Q3

REPORT INFORMATION
  Report Type: Spontaneous
  Country: US (occurrence: US)
  Receive Date: 20180802
  Receipt Date: 20180802
  Transmission Date: 20181010
  Serious: No
  Sender: FDA-Public Use
  Company Number: US-DRREDDYS-USA/USA/17/0091900

PATIENT
  Age: 60 Year
  Sex: Female

DRUGS (1)
  1. ROPINIROLE. [Suspect]
     Active Substance: ROPINIROLE
     Indication: TORTICOLLIS
     Route: 065

REACTIONS (2)
  - Drug intolerance [Unknown]
  - Dyskinesia [Unknown]

NARRATIVE: CASE EVENT DATE: 2001
